FAERS Safety Report 19178454 (Version 1)
Quarter: 2021Q2

REPORT INFORMATION
  Report Type: Spontaneous
  Country: CA (occurrence: CA)
  Receive Date: 20210426
  Receipt Date: 20210426
  Transmission Date: 20210717
  Serious: Yes (Death)
  Sender: FDA-Public Use
  Company Number: CA-DRREDDYS-USA/CAN/21/0134761

PATIENT
  Age: 77 Year
  Sex: Male
  Weight: 74 kg

DRUGS (2)
  1. AZACITIDINE. [Suspect]
     Active Substance: AZACITIDINE
     Route: 058
  2. AZACITIDINE. [Suspect]
     Active Substance: AZACITIDINE
     Indication: ACUTE MYELOID LEUKAEMIA
     Route: 058

REACTIONS (6)
  - Asthenia [Fatal]
  - Urinary incontinence [Fatal]
  - Constipation [Fatal]
  - Anal incontinence [Fatal]
  - Anaemia [Fatal]
  - Hypotension [Fatal]
